FAERS Safety Report 5011606-3 (Version None)
Quarter: 2006Q2

REPORT INFORMATION
  Report Type: 
  Country: None (occurrence: None)
  Receive Date: 20060404
  Receipt Date: 20060117
  Transmission Date: 20061013
  Serious: No
  Sender: FDA-Public Use
  Company Number: US200601002864

PATIENT
  Age: 41 Year
  Sex: Female

DRUGS (5)
  1. CYMBALTA [Suspect]
     Indication: DEPRESSION
     Dosage: 30 MG, DAILY (1/D)
     Dates: start: 20060111
  2. LEXAPRO /USA/ (ESCITALOPRAM) [Concomitant]
  3. NIFEDIPINE [Concomitant]
  4. PREMARIN [Concomitant]
  5. MULTIVITAMINS (ASCORBIC ACID, ERGOCALCIFEROL, FOLIC ACID, NICOTINAMIDE [Concomitant]

REACTIONS (3)
  - DEPRESSION [None]
  - FEELING ABNORMAL [None]
  - PARAESTHESIA [None]
